FAERS Safety Report 4448327-1 (Version None)
Quarter: 2004Q3

REPORT INFORMATION
  Report Type: 
  Country: None (occurrence: None)
  Receive Date: 20040913
  Receipt Date: 20040825
  Transmission Date: 20050211
  Serious: Yes (Hospitalization)
  Sender: FDA-Public Use
  Company Number: 2004-0007385

PATIENT
  Sex: Female

DRUGS (3)
  1. PLACEBO  (PLACEBO) [Suspect]
     Indication: PROPHYLAXIS AGAINST HIV INFECTION
     Dates: start: 20040706, end: 20040819
  2. CHLOROQUINE (CHLOROQUINE) [Concomitant]
  3. IRON SALTS (IRON) [Concomitant]

REACTIONS (4)
  - CIRCULATORY COLLAPSE [None]
  - COMPLICATIONS OF MATERNAL EXPOSURE TO THERAPEUTIC DRUGS [None]
  - MALARIA [None]
  - PREGNANCY [None]
